FAERS Safety Report 8489883-6 (Version None)
Quarter: 2012Q3

REPORT INFORMATION
  Report Type: 
  Country: None (occurrence: None)
  Receive Date: 20120705
  Receipt Date: 20120627
  Transmission Date: 20120928
  Serious: Yes (Other)
  Sender: FDA-Public Use
  Company Number: PHHY2012US055967

PATIENT
  Age: 72 Year
  Sex: Female

DRUGS (2)
  1. ATORVASTATIN [Suspect]
  2. AMIODARONE HCL [Suspect]
     Indication: TACHYARRHYTHMIA
     Dosage: 200 MG

REACTIONS (6)
  - MYOPATHY [None]
  - MUSCULAR WEAKNESS [None]
  - MYOCLONUS [None]
  - NEUROPATHY PERIPHERAL [None]
  - DYSPHAGIA [None]
  - ATAXIA [None]
